FAERS Safety Report 19115810 (Version 1)
Quarter: 2021Q2

REPORT INFORMATION
  Report Type: Spontaneous
  Country: US (occurrence: US)
  Receive Date: 20210409
  Receipt Date: 20210409
  Transmission Date: 20210717
  Serious: No
  Sender: FDA-Public Use
  Company Number: US-MYLANLABS-2021M1020154

PATIENT
  Sex: Female
  Weight: 52 kg

DRUGS (1)
  1. PROPAFENONE HYDROCHLORIDE EXTENDED?RELEASE CAPSULES [Suspect]
     Active Substance: PROPAFENONE HYDROCHLORIDE
     Indication: ATRIAL FIBRILLATION
     Dosage: UNK
     Route: 048
     Dates: start: 2019

REACTIONS (1)
  - Insomnia [Recovered/Resolved]
